FAERS Safety Report 7833803-1 (Version None)
Quarter: 2011Q4

REPORT INFORMATION
  Report Type: 
  Country: None (occurrence: None)
  Receive Date: 20111024
  Receipt Date: 20111017
  Transmission Date: 20120403
  Serious: Yes (Hospitalization)
  Sender: FDA-Public Use
  Company Number: US-GLAXOSMITHKLINE-A0774028A

PATIENT
  Age: 56 Year
  Sex: Female

DRUGS (3)
  1. DIAZEPAM [Concomitant]
  2. PAROXETINE HCL [Suspect]
     Indication: ANXIETY DISORDER
     Dosage: 20MG PER DAY
     Route: 048
     Dates: start: 20090301
  3. CLONAZEPAM [Concomitant]

REACTIONS (5)
  - DISORIENTATION [None]
  - WITHDRAWAL SYNDROME [None]
  - ROAD TRAFFIC ACCIDENT [None]
  - DRUG INEFFECTIVE [None]
  - HYPERSOMNIA [None]
